FAERS Safety Report 25136778 (Version 2)
Quarter: 2025Q2

REPORT INFORMATION
  Report Type: Spontaneous
  Country: US (occurrence: US)
  Receive Date: 20250328
  Receipt Date: 20250512
  Transmission Date: 20250716
  Serious: Yes (Other)
  Sender: NOVO NORDISK
  Company Number: US-NOVOPROD-1396906

PATIENT
  Sex: Female

DRUGS (3)
  1. NOVOLIN 70/30 [Suspect]
     Active Substance: INSULIN HUMAN
     Indication: Diabetes mellitus
  2. NOVOLOG [Suspect]
     Active Substance: INSULIN ASPART
     Indication: Diabetes mellitus
     Dosage: 10 U, QD
     Route: 058
     Dates: start: 2023
  3. NOVOLOG [Suspect]
     Active Substance: INSULIN ASPART
     Dosage: 10 IU, TID
     Route: 058

REACTIONS (5)
  - Diarrhoea [Recovered/Resolved]
  - Fatigue [Recovered/Resolved]
  - Blood glucose abnormal [Not Recovered/Not Resolved]
  - Wrong product administered [Not Recovered/Not Resolved]
  - Product dispensing error [Not Recovered/Not Resolved]
